FAERS Safety Report 19946337 (Version 5)
Quarter: 2022Q1

REPORT INFORMATION
  Report Type: Report from Study
  Country: US (occurrence: US)
  Receive Date: 20211013
  Receipt Date: 20220216
  Transmission Date: 20220423
  Serious: Yes (Other)
  Sender: FDA-Public Use
  Company Number: US-ABBVIE-21K-163-4076642-00

PATIENT
  Sex: Female
  Weight: 70.370 kg

DRUGS (5)
  1. HUMIRA [Suspect]
     Active Substance: ADALIMUMAB
     Indication: Rheumatoid arthritis
     Route: 058
     Dates: start: 202104
  2. HUMIRA [Suspect]
     Active Substance: ADALIMUMAB
     Route: 058
     Dates: end: 20211105
  3. PFIZER-BIONTECH COVID-19 VACCINE [Suspect]
     Active Substance: TOZINAMERAN
     Indication: COVID-19 immunisation
     Route: 030
     Dates: start: 20210331, end: 20210331
  4. PFIZER-BIONTECH COVID-19 VACCINE [Suspect]
     Active Substance: TOZINAMERAN
     Route: 030
     Dates: start: 20210421, end: 20210421
  5. ATENOLOL [Concomitant]
     Active Substance: ATENOLOL
     Indication: Migraine

REACTIONS (16)
  - Endodontic procedure [Recovered/Resolved]
  - Toothache [Recovered/Resolved]
  - Endodontic procedure [Unknown]
  - Procedural complication [Unknown]
  - Muscle strain [Unknown]
  - Fatigue [Unknown]
  - Vaccination site pain [Unknown]
  - Sinus congestion [Recovering/Resolving]
  - Stress [Not Recovered/Not Resolved]
  - Inflammation [Unknown]
  - Swelling [Unknown]
  - Infection [Unknown]
  - Pain [Unknown]
  - Rheumatoid arthritis [Not Recovered/Not Resolved]
  - COVID-19 [Recovering/Resolving]
  - Drug ineffective [Unknown]

NARRATIVE: CASE EVENT DATE: 20170101
